FAERS Safety Report 7915012-0 (Version None)
Quarter: 2011Q4

REPORT INFORMATION
  Report Type: 
  Country: None (occurrence: None)
  Receive Date: 20111115
  Receipt Date: 20111004
  Transmission Date: 20120403
  Serious: Yes (Death, Life-Threatening, Hospitalization, Other)
  Sender: FDA-Public Use
  Company Number: IL-ROCHE-740282

PATIENT
  Sex: Female
  Weight: 55 kg

DRUGS (12)
  1. OMEPRAZOLE [Concomitant]
     Dosage: FREQUENCY: X 2
     Route: 048
  2. RECITAL [Concomitant]
     Dosage: FREQUENCY: X 1
     Route: 048
  3. DISOTHIAZIDE [Concomitant]
     Dosage: FREQUENCY: X 1
     Route: 048
  4. DOCETAXEL [Suspect]
     Indication: BREAST CANCER
     Dosage: DATE OF LAST DOSE PRIOR TO SAE: 25 OCT 2010, FORM: VIAL, DOSE LEVEL: 75 MG/M2.
     Route: 042
  5. HERCEPTIN [Suspect]
     Dosage: MAINTENANCE DOSE. DATE OF LAST DOSE PRIOR TO SAE: 25 OCT 2010, FORM: VIAL, DOSE LEVEL: 6 MG/KG
     Route: 042
  6. SIMVASTATIN [Concomitant]
     Dosage: FREQUENCY: X 1
     Route: 048
  7. CARBOPLATIN [Suspect]
     Indication: BREAST CANCER
     Dosage: DATE OF LAST DOSE PRIOR TO SAE: 25 OCT 2010, FORM: VIAL, DOSE LEVEL: 5 AUC.
     Route: 042
  8. MICROPIRIN [Concomitant]
     Dosage: FREQUENCY: X 1
     Route: 048
  9. RAMIPRIL [Concomitant]
     Dosage: FREQUENCY: X 2
     Route: 048
  10. HERCEPTIN [Suspect]
     Indication: BREAST CANCER
     Dosage: LOADING DOSE: 8 MG/KG ON DAY 1 OF CYCLE 1 ONLY. FORM: VIAL
     Route: 042
  11. AVASTIN [Suspect]
     Indication: BREAST CANCER
     Dosage: DATE OF LAST DOSE PRIOR TO SAE: 25 OCT 2010, FORM: VIAL, DOSE LEVEL: 15 MG/KG.
     Route: 042
  12. BONDORMIN [Concomitant]
     Dosage: FREQUENCY: X 1
     Route: 048

REACTIONS (10)
  - URINARY TRACT INFECTION [None]
  - FEBRILE NEUTROPENIA [None]
  - VENTRICULAR FIBRILLATION [None]
  - MULTI-ORGAN FAILURE [None]
  - CEREBRAL HAEMORRHAGE [None]
  - SEPSIS [None]
  - ACUTE MYOCARDIAL INFARCTION [None]
  - NEUTROPENIA [None]
  - CEREBROVASCULAR ACCIDENT [None]
  - MYOCARDIAL INFARCTION [None]
